FAERS Safety Report 22071041 (Version 1)
Quarter: 2023Q1

REPORT INFORMATION
  Report Type: Spontaneous
  Country: JP (occurrence: JP)
  Receive Date: 20230307
  Receipt Date: 20230307
  Transmission Date: 20230418
  Serious: Yes (Other)
  Sender: FDA-Public Use
  Company Number: JP-AMGEN-JPNSP2023035830

PATIENT

DRUGS (1)
  1. EVENITY [Suspect]
     Active Substance: ROMOSOZUMAB-AQQG
     Indication: Product used for unknown indication
     Dosage: 210 MILLIGRAM, QMO
     Route: 058

REACTIONS (6)
  - Loss of consciousness [Unknown]
  - Adverse drug reaction [Unknown]
  - Gait disturbance [Unknown]
  - Fall [Unknown]
  - Ill-defined disorder [Unknown]
  - Pain [Unknown]
